FAERS Safety Report 8201942-1 (Version None)
Quarter: 2012Q1

REPORT INFORMATION
  Report Type: 
  Country: None (occurrence: None)
  Receive Date: 20120312
  Receipt Date: 20120306
  Transmission Date: 20120608
  Serious: Yes (Other)
  Sender: FDA-Public Use
  Company Number: GR-PFIZER INC-2012061942

PATIENT
  Age: 33 Year
  Sex: Female

DRUGS (3)
  1. AMOXICILLIN AND CLAVULANATE POTASSIUM [Suspect]
     Dosage: UNK
  2. AZITHROMYCIN [Suspect]
     Dosage: UNK
  3. BETAMETHASONE [Suspect]
     Dosage: UNK

REACTIONS (2)
  - RESPIRATORY FAILURE [None]
  - BRONCHIOLITIS [None]
